FAERS Safety Report 8489613-8 (Version None)
Quarter: 2012Q3

REPORT INFORMATION
  Report Type: 
  Country: None (occurrence: None)
  Receive Date: 20120705
  Receipt Date: 20120628
  Transmission Date: 20120928
  Serious: Yes (Hospitalization)
  Sender: FDA-Public Use
  Company Number: US-PFIZER INC-2012081807

PATIENT
  Sex: Male
  Weight: 61.2 kg

DRUGS (5)
  1. ZYRTEC [Concomitant]
     Dosage: 10 MG, 1X/DAY
  2. CHANTIX [Suspect]
     Dosage: UNK
     Route: 048
     Dates: start: 20110101, end: 20111001
  3. ADVAIR DISKUS 100/50 [Concomitant]
     Dosage: UNK
  4. CHANTIX [Suspect]
     Dosage: 0.5 MG, DAILY
     Route: 048
     Dates: start: 20110101, end: 20110101
  5. CHANTIX [Suspect]
     Indication: SMOKING CESSATION THERAPY
     Dosage: 0.5 MG, DAILY
     Route: 048
     Dates: start: 20110301, end: 20110501

REACTIONS (7)
  - URTICARIA [None]
  - BLISTER [None]
  - ERYTHEMA [None]
  - ABNORMAL DREAMS [None]
  - SKIN DISORDER [None]
  - PRURITUS [None]
  - NAUSEA [None]
